FAERS Safety Report 8582771-6 (Version None)
Quarter: 2012Q3

REPORT INFORMATION
  Report Type: 
  Country: None (occurrence: None)
  Receive Date: 20120809
  Receipt Date: 20120806
  Transmission Date: 20120928
  Serious: No
  Sender: FDA-Public Use
  Company Number: FI-UCBSA-062795

PATIENT
  Age: 25 Year
  Sex: Female
  Weight: 74 kg

DRUGS (2)
  1. IBUMAX [Concomitant]
     Indication: TENSION HEADACHE
     Route: 048
     Dates: start: 20080101
  2. LACOSAMIDE [Suspect]
     Route: 048
     Dates: start: 20120320

REACTIONS (1)
  - BRADYCARDIA [None]
